FAERS Safety Report 14166244 (Version 1)
Quarter: 2017Q4

REPORT INFORMATION
  Report Type: Spontaneous
  Country: US (occurrence: US)
  Receive Date: 20171107
  Receipt Date: 20171107
  Transmission Date: 20180321
  Serious: Yes (Death, Hospitalization, Other)
  Sender: FDA-Public Use
  Company Number: US-ASTRAZENECA-2017SF12539

PATIENT
  Age: 28811 Day
  Sex: Male
  Weight: 97.5 kg

DRUGS (1)
  1. FARXIGA [Suspect]
     Active Substance: DAPAGLIFLOZIN PROPANEDIOL
     Indication: TYPE 2 DIABETES MELLITUS
     Route: 048
     Dates: start: 201604

REACTIONS (11)
  - Thrombosis [Unknown]
  - Pollakiuria [Unknown]
  - Metastases to lymph nodes [Unknown]
  - Abdominal distension [Unknown]
  - Loss of consciousness [Unknown]
  - Intentional product misuse [Unknown]
  - Urethral cancer [Unknown]
  - Metastases to abdominal cavity [Unknown]
  - Blood electrolytes decreased [Unknown]
  - Metastases to kidney [Unknown]
  - Death [Fatal]

NARRATIVE: CASE EVENT DATE: 20170818
